APPROVED DRUG PRODUCT: PROCAINAMIDE HYDROCHLORIDE
Active Ingredient: PROCAINAMIDE HYDROCHLORIDE
Strength: 500MG
Dosage Form/Route: CAPSULE;ORAL
Application: A087875 | Product #001
Applicant: VANGARD LABORATORIES INC DIV MIDWAY MEDICAL CO
Approved: Jun 1, 1982 | RLD: No | RS: No | Type: DISCN